FAERS Safety Report 14942043 (Version 2)
Quarter: 2018Q2

REPORT INFORMATION
  Report Type: Spontaneous
  Country: US (occurrence: US)
  Receive Date: 20180527
  Receipt Date: 20180622
  Transmission Date: 20180711
  Serious: No
  Sender: FDA-Public Use
  Company Number: US-009507513-1805USA011136

PATIENT
  Age: 27 Year
  Sex: Female
  Weight: 113.38 kg

DRUGS (1)
  1. NEXPLANON [Suspect]
     Active Substance: ETONOGESTREL
     Indication: CONTRACEPTION
     Dosage: IMPLANT INSDIE THE LEFT ARM / FREQUENCY: ^4 TO 5 YEARS ^
     Route: 059
     Dates: start: 20180521

REACTIONS (4)
  - Implant site pain [Unknown]
  - Incorrect drug administration duration [Unknown]
  - Medical device discomfort [Unknown]
  - Circumstance or information capable of leading to medication error [Unknown]

NARRATIVE: CASE EVENT DATE: 2018
